FAERS Safety Report 9326687 (Version 1)
Quarter: 2013Q2

REPORT INFORMATION
  Report Type: Spontaneous
  Country: US (occurrence: US)
  Receive Date: 20130604
  Receipt Date: 20130604
  Transmission Date: 20140414
  Serious: No
  Sender: FDA-Public Use
  Company Number: US-AMGEN-USASP2013031725

PATIENT
  Age: 62 Year
  Sex: Female

DRUGS (4)
  1. ENBREL [Suspect]
     Indication: RHEUMATOID ARTHRITIS
     Dosage: 50 MG, QWK
     Dates: start: 20130124
  2. ENBREL [Suspect]
  3. METHOTREXATE                       /00113802/ [Concomitant]
     Dosage: 15 MG, QWK
     Route: 048
     Dates: start: 2011
  4. PLAQUENIL                          /00072602/ [Concomitant]
     Dosage: 200 MG, QD
     Route: 048
     Dates: start: 2011

REACTIONS (1)
  - Injection site pain [Not Recovered/Not Resolved]
